FAERS Safety Report 8500502-2 (Version None)
Quarter: 2012Q3

REPORT INFORMATION
  Report Type: 
  Country: None (occurrence: None)
  Receive Date: 20120710
  Receipt Date: 20120704
  Transmission Date: 20120928
  Serious: Yes (Other)
  Sender: FDA-Public Use
  Company Number: BR-US-EMD SERONO, INC.-7145318

PATIENT
  Sex: Female

DRUGS (2)
  1. DALSY [Concomitant]
     Indication: PRODUCT USED FOR UNKNOWN INDICATION
  2. REBIF [Suspect]
     Indication: RELAPSING-REMITTING MULTIPLE SCLEROSIS
     Dates: start: 20100901

REACTIONS (11)
  - PAIN [None]
  - NITRITE URINE PRESENT [None]
  - PYREXIA [None]
  - HEADACHE [None]
  - FATIGUE [None]
  - TOOTHACHE [None]
  - WHITE BLOOD CELL COUNT INCREASED [None]
  - FACIAL PAIN [None]
  - EAR PAIN [None]
  - INJECTION SITE ERYTHEMA [None]
  - BACTERIAL TEST POSITIVE [None]
